FAERS Safety Report 8319345-8 (Version None)
Quarter: 2012Q2

REPORT INFORMATION
  Report Type: 
  Country: None (occurrence: None)
  Receive Date: 20120427
  Receipt Date: 20120417
  Transmission Date: 20120825
  Serious: Yes (Other)
  Sender: FDA-Public Use
  Company Number: US-BRISTOL-MYERS SQUIBB COMPANY-16498958

PATIENT
  Age: 70 Year
  Sex: Male
  Weight: 127 kg

DRUGS (6)
  1. COUMADIN [Suspect]
     Indication: ARRHYTHMIA PROPHYLAXIS
  2. PANTOPRAZOLE [Concomitant]
  3. ZOCOR [Concomitant]
  4. SOTALOL HCL [Concomitant]
  5. YERVOY [Suspect]
     Indication: METASTATIC MALIGNANT MELANOMA
     Dosage: LAST INF:12OCT2011  NO OF CYCLE: 4
     Dates: start: 20110810
  6. ASPIRIN [Suspect]

REACTIONS (9)
  - DIARRHOEA [None]
  - SLEEP DISORDER [None]
  - VISION BLURRED [None]
  - GASTROINTESTINAL HAEMORRHAGE [None]
  - RASH [None]
  - NAUSEA [None]
  - WEIGHT DECREASED [None]
  - DECREASED APPETITE [None]
  - PRURITUS [None]
